FAERS Safety Report 21556228 (Version 2)
Quarter: 2022Q4

REPORT INFORMATION
  Report Type: Spontaneous
  Country: US (occurrence: US)
  Receive Date: 20221104
  Receipt Date: 20221214
  Transmission Date: 20230113
  Serious: Yes (Other)
  Sender: FDA-Public Use
  Company Number: US-PFIZER INC-202201269690

PATIENT
  Age: 9 Year
  Sex: Female
  Weight: 27.67 kg

DRUGS (1)
  1. GENOTROPIN [Suspect]
     Active Substance: SOMATROPIN
     Indication: Turner^s syndrome
     Dosage: 1.2 MG, DAILY (1.2MG INJECTED NIGHTLY)

REACTIONS (3)
  - Cardiac operation [Unknown]
  - Device difficult to use [Not Recovered/Not Resolved]
  - Device use issue [Unknown]

NARRATIVE: CASE EVENT DATE: 20221030
